FAERS Safety Report 8435484-5 (Version None)
Quarter: 2012Q2

REPORT INFORMATION
  Report Type: 
  Country: None (occurrence: None)
  Receive Date: 20120614
  Receipt Date: 20120608
  Transmission Date: 20120825
  Serious: Yes (Other)
  Sender: FDA-Public Use
  Company Number: US-AMGEN-USASP2011058871

PATIENT
  Age: 47 Year
  Sex: Female

DRUGS (12)
  1. IBUPROFEN [Concomitant]
     Dosage: UNK UNK, BID
     Route: 048
  2. FISH OIL [Concomitant]
     Dosage: UNK
  3. ENBREL [Suspect]
     Indication: RHEUMATOID ARTHRITIS
     Dosage: 50 MG, QWK
     Route: 058
     Dates: start: 20110106, end: 20111001
  4. CIMZIA [Suspect]
     Indication: RHEUMATOID ARTHRITIS
     Dosage: 200 MG, Q2WK
     Route: 058
     Dates: start: 20110926
  5. LEUCOVORIN CALCIUM [Concomitant]
     Dosage: 1 MG, BID
  6. LODINE [Concomitant]
     Dosage: 400 MG, BID
     Route: 048
  7. METHOTREXATE [Concomitant]
     Dosage: 2.5 MG, UNK
  8. MULTIVITAMIN                       /00097801/ [Concomitant]
  9. LISINOPRIL [Concomitant]
     Dosage: 20 MG, QD
     Route: 048
     Dates: start: 20101006
  10. TYLENOL PM [Concomitant]
     Dosage: UNK UNK, QHS
  11. PLAQUENIL [Concomitant]
     Indication: RHEUMATOID ARTHRITIS
     Dosage: 200 MG, QD
     Route: 048
     Dates: start: 20101011
  12. BENADRYL ALLERGY                   /00000402/ [Concomitant]
     Dosage: UNK UNK, QD
     Route: 048

REACTIONS (26)
  - ARTHRALGIA [None]
  - FATIGUE [None]
  - MUSCULOSKELETAL PAIN [None]
  - ADJUSTMENT DISORDER [None]
  - PAIN IN EXTREMITY [None]
  - BLADDER SPASM [None]
  - HEPATIC STEATOSIS [None]
  - HYPERTENSION [None]
  - LYMPHADENOPATHY [None]
  - HEADACHE [None]
  - COSTOVERTEBRAL ANGLE TENDERNESS [None]
  - PRODUCTIVE COUGH [None]
  - NAUSEA [None]
  - MYALGIA [None]
  - VISUAL IMPAIRMENT [None]
  - GROIN PAIN [None]
  - JOINT CREPITATION [None]
  - SYNOVIAL DISORDER [None]
  - OBESITY [None]
  - NEPHROLITHIASIS [None]
  - DEPRESSION [None]
  - STOMATITIS [None]
  - CHILLS [None]
  - ALOPECIA [None]
  - JOINT STIFFNESS [None]
  - ABDOMINAL PAIN [None]
